FAERS Safety Report 5488440-3 (Version None)
Quarter: 2007Q4

REPORT INFORMATION
  Report Type: 
  Country: None (occurrence: None)
  Receive Date: 20071017
  Receipt Date: 20071010
  Transmission Date: 20080405
  Serious: Yes (Other)
  Sender: FDA-Public Use
  Company Number: PHBS2007JP17090

PATIENT
  Age: 49 Year
  Sex: Male

DRUGS (2)
  1. AREDIA [Suspect]
     Route: 042
     Dates: start: 20011101
  2. ZOMETA [Suspect]
     Route: 042

REACTIONS (1)
  - OSTEONECROSIS [None]
